FAERS Safety Report 6971757-0 (Version None)
Quarter: 2010Q3

REPORT INFORMATION
  Report Type: 
  Country: None (occurrence: None)
  Receive Date: 20100903
  Receipt Date: 20100819
  Transmission Date: 20110219
  Serious: Yes (Hospitalization, Disabling)
  Sender: FDA-Public Use
  Company Number: JP-SOLVAY-00310004074

PATIENT
  Age: 44 Year
  Sex: Female

DRUGS (4)
  1. FLUVOXAMINE MALEATE [Suspect]
     Indication: DEPRESSION
     Dosage: 150 MILLIGRAM(S) ORAL
     Route: 048
     Dates: start: 20080101, end: 20080623
  2. DALMATE (FLURAZEPAM HYDROCHLORIDE) [Concomitant]
  3. DEPAS (ETIZOLAM) [Concomitant]
  4. HALCION [Concomitant]

REACTIONS (20)
  - ASPARTATE AMINOTRANSFERASE INCREASED [None]
  - BLOOD CALCIUM DECREASED [None]
  - BLOOD CREATINE PHOSPHOKINASE DECREASED [None]
  - CEREBRAL INFARCTION [None]
  - CEREBRAL VASOCONSTRICTION [None]
  - DIZZINESS [None]
  - DRUG INEFFECTIVE [None]
  - GAIT DISTURBANCE [None]
  - HAEMATOCRIT DECREASED [None]
  - HAEMOGLOBIN DECREASED [None]
  - HEADACHE [None]
  - HEMIANOPIA [None]
  - HIGH DENSITY LIPOPROTEIN INCREASED [None]
  - LYMPHOCYTE PERCENTAGE DECREASED [None]
  - MEAN CELL HAEMOGLOBIN INCREASED [None]
  - MEAN CELL VOLUME INCREASED [None]
  - MIGRAINE [None]
  - MUSCULAR WEAKNESS [None]
  - RED BLOOD CELL COUNT DECREASED [None]
  - WHITE BLOOD CELL COUNT DECREASED [None]
